FAERS Safety Report 7509795-1 (Version None)
Quarter: 2011Q2

REPORT INFORMATION
  Report Type: 
  Country: None (occurrence: None)
  Receive Date: 20110527
  Receipt Date: 20110513
  Transmission Date: 20111010
  Serious: Yes (Hospitalization)
  Sender: FDA-Public Use
  Company Number: A0778968A

PATIENT
  Age: 67 Year
  Sex: Male
  Weight: 129.5 kg

DRUGS (10)
  1. DICLOFENAC SODIUM [Concomitant]
  2. ASPIRIN [Concomitant]
  3. LASIX [Concomitant]
  4. VIAGRA [Concomitant]
  5. GLUCOVANCE [Concomitant]
  6. DIOVAN [Concomitant]
  7. IBUPROFEN [Concomitant]
  8. ACIPHEX [Concomitant]
  9. AVANDIA [Suspect]
     Dosage: 4MG PER DAY
     Route: 048
     Dates: start: 20030701, end: 20070501
  10. NEXIUM [Concomitant]

REACTIONS (3)
  - CEREBROVASCULAR ACCIDENT [None]
  - MYOCARDIAL INFARCTION [None]
  - MYOCARDIAL ISCHAEMIA [None]
